FAERS Safety Report 12619485 (Version 1)
Quarter: 2016Q3

REPORT INFORMATION
  Report Type: Spontaneous
  Country: US (occurrence: US)
  Receive Date: 20160803
  Receipt Date: 20160803
  Transmission Date: 20161109
  Serious: No
  Sender: FDA-Public Use
  Company Number: US-PFIZER INC-2016370440

PATIENT
  Age: 49 Year
  Sex: Female
  Weight: 112.4 kg

DRUGS (9)
  1. VENLAFAXINE HCL [Interacting]
     Active Substance: VENLAFAXINE HYDROCHLORIDE
     Indication: DEPRESSION
     Dosage: 150 MG, 2X/DAY
     Route: 048
     Dates: start: 1991, end: 201607
  2. PRISTIQ EXTENDED-RELEASE [Interacting]
     Active Substance: DESVENLAFAXINE SUCCINATE
     Indication: ANXIETY
     Dosage: 100MG DAILY
     Dates: start: 20160724, end: 20160727
  3. ALEVE [Concomitant]
     Active Substance: NAPROXEN SODIUM
     Indication: OSTEOARTHRITIS
     Dosage: 440 MG, 2X/DAY
     Dates: start: 2016
  4. PRISTIQ EXTENDED-RELEASE [Suspect]
     Active Substance: DESVENLAFAXINE SUCCINATE
     Indication: DEPRESSION
     Dosage: 50 MG, 1X/DAY
     Dates: start: 20160720, end: 20160723
  5. PRISTIQ EXTENDED-RELEASE [Interacting]
     Active Substance: DESVENLAFAXINE SUCCINATE
     Dosage: 50MG DAILY
     Dates: start: 20160728, end: 20160728
  6. VENLAFAXINE HCL [Interacting]
     Active Substance: VENLAFAXINE HYDROCHLORIDE
     Dosage: 150 MG, 1X/DAY
     Route: 048
     Dates: start: 20160729
  7. VENLAFAXINE HCL [Interacting]
     Active Substance: VENLAFAXINE HYDROCHLORIDE
     Indication: ANXIETY
     Dosage: 150MG ONCE THAT DAY
     Dates: start: 20160723, end: 20160723
  8. VENLAFAXINE HCL [Interacting]
     Active Substance: VENLAFAXINE HYDROCHLORIDE
     Dosage: 75MG ONCE A DAY
     Route: 048
     Dates: start: 20160724, end: 20160728
  9. ZYRTEC [Concomitant]
     Active Substance: CETIRIZINE HYDROCHLORIDE
     Indication: HYPERSENSITIVITY
     Dosage: 10MG EVERY DAY
     Dates: start: 2011

REACTIONS (11)
  - Drug ineffective [Not Recovered/Not Resolved]
  - Drug interaction [Unknown]
  - Intentional product misuse [Unknown]
  - Headache [Recovering/Resolving]
  - Visual brightness [Recovering/Resolving]
  - Activities of daily living impaired [Unknown]
  - Hot flush [Unknown]
  - Drug dose omission [Unknown]
  - Bradyphrenia [Recovering/Resolving]
  - Fatigue [Recovering/Resolving]
  - Therapeutic response unexpected [Unknown]

NARRATIVE: CASE EVENT DATE: 201607
